FAERS Safety Report 6646743-0 (Version None)
Quarter: 2010Q1

REPORT INFORMATION
  Report Type: 
  Country: None (occurrence: None)
  Receive Date: 20100323
  Receipt Date: 20100316
  Transmission Date: 20100710
  Serious: Yes (Other)
  Sender: FDA-Public Use
  Company Number: US-SANOFI-AVENTIS-A03200903886

PATIENT
  Age: 63 Year
  Sex: Male
  Weight: 88.64 kg

DRUGS (10)
  1. DRONEDARONE HCL [Suspect]
     Indication: ATRIAL FIBRILLATION
     Dosage: UNIT DOSE: 400 MG
     Route: 048
     Dates: start: 20090801, end: 20090904
  2. DRONEDARONE HCL [Suspect]
     Indication: ATRIAL FLUTTER
     Dosage: UNIT DOSE: 400 MG
     Route: 048
     Dates: start: 20090801, end: 20090904
  3. DRONEDARONE HCL [Suspect]
     Route: 048
     Dates: start: 20091001
  4. DRONEDARONE HCL [Suspect]
     Route: 048
     Dates: start: 20091001
  5. MERCAPTOPURINE [Concomitant]
     Dosage: UNIT DOSE: 75 MG
     Route: 048
     Dates: start: 20070101
  6. ZYRTEC [Concomitant]
  7. VIAGRA [Concomitant]
  8. ALPRAZOLAM [Concomitant]
  9. IRON [Concomitant]
  10. FOLIC ACID [Concomitant]

REACTIONS (5)
  - ATRIAL FLUTTER [None]
  - DIARRHOEA [None]
  - FLUSHING [None]
  - ILL-DEFINED DISORDER [None]
  - IRRITABILITY [None]
